FAERS Safety Report 23027419 (Version 1)
Quarter: 2023Q4

REPORT INFORMATION
  Report Type: Spontaneous
  Country: US (occurrence: US)
  Receive Date: 20231004
  Receipt Date: 20231004
  Transmission Date: 20240110
  Serious: No
  Sender: FDA-Public Use
  Company Number: US-MELINTA THERAPEUTICS, LLC-US-MLNT-23-00389

PATIENT
  Sex: Female

DRUGS (2)
  1. KIMYRSA [Suspect]
     Active Substance: ORITAVANCIN DIPHOSPHATE
     Indication: Osteomyelitis
     Dosage: 1200 MILLIGRAM, QN
     Route: 041
  2. KIMYRSA [Suspect]
     Active Substance: ORITAVANCIN DIPHOSPHATE
     Dosage: UNK, 5 MINUTES
     Route: 041

REACTIONS (5)
  - Drug hypersensitivity [Unknown]
  - Chest discomfort [Unknown]
  - Back pain [Unknown]
  - Multiple use of single-use product [Unknown]
  - Off label use [Unknown]
